FAERS Safety Report 25664830 (Version 1)
Quarter: 2025Q3

REPORT INFORMATION
  Report Type: Spontaneous
  Country: GB (occurrence: GB)
  Receive Date: 20250811
  Receipt Date: 20250811
  Transmission Date: 20251020
  Serious: Yes (Life-Threatening, Other)
  Sender: BAYER HEALTHCARE PHARMACEUTICALS INC.
  Company Number: None

PATIENT
  Age: 87 Year
  Sex: Female
  Weight: 48 kg

DRUGS (10)
  1. CIPROFLOXACIN [Suspect]
     Active Substance: CIPROFLOXACIN
     Dates: start: 20250219, end: 20250227
  2. LOSARTAN [Concomitant]
     Active Substance: LOSARTAN
  3. CHOLECALCIFEROL [Concomitant]
     Active Substance: CHOLECALCIFEROL
  4. BUPRENORPHINE [Concomitant]
     Active Substance: BUPRENORPHINE
  5. COSOPT [Concomitant]
     Active Substance: DORZOLAMIDE HYDROCHLORIDE\TIMOLOL MALEATE
  6. RISEDRONATE SODIUM [Concomitant]
     Active Substance: RISEDRONATE SODIUM
  7. ACETAMINOPHEN [Concomitant]
     Active Substance: ACETAMINOPHEN
     Indication: Adverse drug reaction
  8. TAFLUPROST [Concomitant]
     Active Substance: TAFLUPROST
     Indication: Glaucoma
     Dates: start: 2000
  9. BUPRENORPHINE [Concomitant]
     Active Substance: BUPRENORPHINE
     Indication: Pain
     Dates: start: 20240801
  10. TAFLUPROST [Concomitant]
     Active Substance: TAFLUPROST
     Indication: Glaucoma

REACTIONS (2)
  - Depressed mood [Recovered/Resolved]
  - Suicidal ideation [Unknown]

NARRATIVE: CASE EVENT DATE: 20250219
